FAERS Safety Report 6498815-1 (Version None)
Quarter: 2009Q4

REPORT INFORMATION
  Report Type: 
  Country: None (occurrence: None)
  Receive Date: 20091127
  Receipt Date: 20081110
  Transmission Date: 20100525
  Serious: Yes (Disabling)
  Sender: FDA-Public Use
  Company Number: WAES 0811USA01201

PATIENT
  Age: 79 Year
  Sex: Male

DRUGS (5)
  1. FOSAMAX [Suspect]
     Indication: COMPRESSION FRACTURE
     Dosage: 70 MG/WKY/PO
     Route: 048
     Dates: start: 20030714, end: 20060424
  2. FOSAMAX [Suspect]
     Indication: OSTEOPOROSIS
     Dosage: 70 MG/WKY/PO
     Route: 048
     Dates: start: 20030714, end: 20060424
  3. CELEBREX [Concomitant]
  4. PAXIL [Concomitant]
  5. VIOXX [Concomitant]

REACTIONS (22)
  - ABDOMINAL PAIN [None]
  - ABDOMINAL PAIN UPPER [None]
  - ADVERSE DRUG REACTION [None]
  - ASTHMA [None]
  - BENIGN PROSTATIC HYPERPLASIA [None]
  - BLOOD CHOLESTEROL INCREASED [None]
  - BRONCHITIS [None]
  - CHRONIC OBSTRUCTIVE PULMONARY DISEASE [None]
  - COUGH [None]
  - DENTAL CARIES [None]
  - DENTAL PLAQUE [None]
  - EPIDIDYMITIS [None]
  - IMPAIRED HEALING [None]
  - LABYRINTHITIS [None]
  - ORAL INFECTION [None]
  - OSTEONECROSIS [None]
  - PARAESTHESIA [None]
  - PERIODONTITIS [None]
  - PNEUMONIA [None]
  - RIB FRACTURE [None]
  - TOOTHACHE [None]
  - VERTIGO [None]
